FAERS Safety Report 16462661 (Version 1)
Quarter: 2019Q2

REPORT INFORMATION
  Report Type: Spontaneous
  Country: US (occurrence: US)
  Receive Date: 20190511
  Receipt Date: 20190511
  Transmission Date: 20190711
  Serious: No
  Sender: FDA-Public Use
  Company Number: None

PATIENT
  Age: 79 Year
  Sex: Female
  Weight: 67.4 kg

DRUGS (2)
  1. BENDAMUSTINE HYDROCHLORIDE. [Suspect]
     Active Substance: BENDAMUSTINE HYDROCHLORIDE
     Dates: end: 20150512
  2. RITUXIMAB (MOAB C2B8) [Suspect]
     Active Substance: RITUXIMAB
     Dates: end: 20150511

REACTIONS (2)
  - Eczema asteatotic [None]
  - Bowen^s disease [None]

NARRATIVE: CASE EVENT DATE: 20160805
